FAERS Safety Report 16513763 (Version 3)
Quarter: 2019Q3

REPORT INFORMATION
  Report Type: Spontaneous
  Country: JP (occurrence: JP)
  Receive Date: 20190702
  Receipt Date: 20190711
  Transmission Date: 20191004
  Serious: Yes (Death, Other)
  Sender: FDA-Public Use
  Company Number: JP-PFIZER INC-2019276051

PATIENT
  Age: 6 Month

DRUGS (1)
  1. ADCIRCA [Suspect]
     Active Substance: TADALAFIL
     Indication: NEWBORN PERSISTENT PULMONARY HYPERTENSION
     Dosage: UNK
     Route: 048

REACTIONS (5)
  - Product use issue [Unknown]
  - Oxygen saturation decreased [Not Recovered/Not Resolved]
  - Therapeutic product effect incomplete [Unknown]
  - Pulmonary hypertension [Fatal]
  - Off label use [Unknown]
